FAERS Safety Report 8134145-X (Version None)
Quarter: 2012Q1

REPORT INFORMATION
  Report Type: 
  Country: None (occurrence: None)
  Receive Date: 20120213
  Receipt Date: 20120213
  Transmission Date: 20120608
  Serious: No
  Sender: FDA-Public Use
  Company Number: None

PATIENT
  Sex: Female
  Weight: 64.4 kg

DRUGS (2)
  1. TAXOL [Suspect]
     Dosage: 290 MG
     Dates: end: 20111209
  2. CARBOPLATIN [Suspect]
     Dosage: 390 MG
     Dates: end: 20111209

REACTIONS (4)
  - DIZZINESS [None]
  - NAUSEA [None]
  - ASTHENIA [None]
  - BEDRIDDEN [None]
